FAERS Safety Report 10214168 (Version 1)
Quarter: 2014Q2

REPORT INFORMATION
  Report Type: Spontaneous
  Country: ES (occurrence: None)
  Receive Date: 20140530
  Receipt Date: 20140530
  Transmission Date: 20141212
  Serious: Yes (Other)
  Sender: FDA-Public Use
  Company Number: 2014P1004565

PATIENT
  Age: 71 Year
  Sex: Male

DRUGS (1)
  1. AMOXICILLIN [Suspect]
     Route: 048

REACTIONS (12)
  - Discomfort [None]
  - Vomiting [None]
  - Urticaria [None]
  - Pruritus generalised [None]
  - Dizziness [None]
  - Hypotension [None]
  - Faecal incontinence [None]
  - Sense of oppression [None]
  - Kounis syndrome [None]
  - Papule [None]
  - Tryptase increased [None]
  - Blood immunoglobulin E increased [None]
